FAERS Safety Report 6961579-9 (Version None)
Quarter: 2010Q3

REPORT INFORMATION
  Report Type: 
  Country: None (occurrence: None)
  Receive Date: 20100901
  Receipt Date: 20100818
  Transmission Date: 20110219
  Serious: Yes (Hospitalization, Disabling)
  Sender: FDA-Public Use
  Company Number: DE-MYLANLABS-2010S1015017

PATIENT
  Age: 54 Year
  Sex: Female

DRUGS (2)
  1. METHOTREXATE [Suspect]
     Indication: BREAST CANCER METASTATIC
     Dosage: FOUR CYCLES OF METHOTREXATE 15MG EVERY 5 DAYS
     Route: 037
  2. DEXAMETHASONE [Suspect]
     Indication: BREAST CANCER METASTATIC
     Route: 037

REACTIONS (6)
  - FAECAL INCONTINENCE [None]
  - GASTROINTESTINAL TOXICITY [None]
  - MYELOPATHY [None]
  - PANCYTOPENIA [None]
  - PARAPARESIS [None]
  - URINARY INCONTINENCE [None]
